FAERS Safety Report 6071071-4 (Version None)
Quarter: 2009Q1

REPORT INFORMATION
  Report Type: 
  Country: None (occurrence: None)
  Receive Date: 20090209
  Receipt Date: 20080826
  Transmission Date: 20090719
  Serious: No
  Sender: FDA-Public Use
  Company Number: A0743940A

PATIENT
  Age: 51 Year
  Sex: Female

DRUGS (2)
  1. PAXIL CR [Suspect]
     Indication: PANIC DISORDER
     Dosage: 12.5MG PER DAY
     Route: 048
     Dates: start: 20080820
  2. NO CONCURRENT MEDICATION [Concomitant]

REACTIONS (3)
  - ANOREXIA [None]
  - HEADACHE [None]
  - MENORRHAGIA [None]
